FAERS Safety Report 7715550-X (Version None)
Quarter: 2011Q3

REPORT INFORMATION
  Report Type: 
  Country: None (occurrence: None)
  Receive Date: 20110829
  Receipt Date: 20110816
  Transmission Date: 20111222
  Serious: Yes (Other)
  Sender: FDA-Public Use
  Company Number: KR-JNJFOC-20110810767

PATIENT
  Age: 77 Year
  Sex: Female

DRUGS (1)
  1. RISPERIDONE [Suspect]
     Indication: DEPRESSION
     Route: 065

REACTIONS (1)
  - COGNITIVE DISORDER [None]
